FAERS Safety Report 7551820-6 (Version None)
Quarter: 2011Q2

REPORT INFORMATION
  Report Type: 
  Country: None (occurrence: None)
  Receive Date: 20110616
  Receipt Date: 20110614
  Transmission Date: 20111010
  Serious: Yes (Other)
  Sender: FDA-Public Use
  Company Number: CA-TEVA-286388USA

PATIENT
  Age: 58 Year
  Sex: Female

DRUGS (5)
  1. CLOBAZAM [Concomitant]
     Dosage: 10 MILLIGRAM;
  2. SIMVASTATIN [Concomitant]
     Dosage: 20 MILLIGRAM;
  3. VALPROATE SODIUM [Concomitant]
     Dosage: 125 MG (TID) + 500 MG (BID)
  4. LAMOTRIGINE [Suspect]
     Indication: EPILEPSY
     Dosage: 200 MILLIGRAM;
     Route: 048
  5. URSODIOL [Concomitant]
     Dosage: 1000 MILLIGRAM;

REACTIONS (1)
  - HEPATIC CIRRHOSIS [None]
